FAERS Safety Report 9500103 (Version 2)
Quarter: 2013Q3

REPORT INFORMATION
  Report Type: Spontaneous
  Country: US (occurrence: US)
  Receive Date: 20130905
  Receipt Date: 20130905
  Transmission Date: 20140515
  Serious: Yes (Other)
  Sender: FDA-Public Use
  Company Number: PHEH2013US016157

PATIENT
  Age: 66 Year
  Sex: Female

DRUGS (7)
  1. TASIGNA [Suspect]
     Indication: CHRONIC MYELOID LEUKAEMIA
     Dosage: 300 MG, BID
     Route: 048
     Dates: start: 20130626, end: 20130730
  2. TASIGNA [Suspect]
     Dosage: 150 MG EVERY MORNING(AM) AND 300 MG EVERY EVENING (PM)
     Dates: start: 20130730
  3. ATORVASTATIN [Concomitant]
     Indication: HYPERCHOLESTEROLAEMIA
     Dosage: 40 MG, QD
  4. VIT D [Concomitant]
     Dosage: 2000 U, QD
  5. METFORMIN [Concomitant]
     Indication: DIABETES MELLITUS
     Dosage: 1000 MG, BID
     Route: 048
  6. FISH OIL [Concomitant]
     Dosage: UNK, QD
  7. CALCIUM [Concomitant]
     Dosage: 1500 MG, QD

REACTIONS (3)
  - Pancytopenia [Recovering/Resolving]
  - White blood cell count decreased [Unknown]
  - Platelet count decreased [Unknown]
